FAERS Safety Report 25678219 (Version 1)
Quarter: 2025Q3

REPORT INFORMATION
  Report Type: Spontaneous
  Country: US (occurrence: US)
  Receive Date: 20250813
  Receipt Date: 20250813
  Transmission Date: 20251021
  Serious: Yes (Other)
  Sender: INTERNATIONAL MEDICATION SYSTEM
  Company Number: US-International Medication Systems, Limited-2182438

PATIENT

DRUGS (1)
  1. LIDOCAINE HYDROCHLORIDE [Suspect]
     Active Substance: LIDOCAINE HYDROCHLORIDE
     Dates: start: 20250801, end: 20250801

REACTIONS (1)
  - Foreign body in respiratory tract [Unknown]

NARRATIVE: CASE EVENT DATE: 20250801
